FAERS Safety Report 10223415 (Version 1)
Quarter: 2014Q2

REPORT INFORMATION
  Report Type: Spontaneous
  Country: US (occurrence: None)
  Receive Date: 20140605
  Receipt Date: 20140605
  Transmission Date: 20141212
  Serious: Yes (Other)
  Sender: FDA-Public Use
  Company Number: 2014PL000086

PATIENT
  Age: 59 Year
  Sex: Female
  Weight: 79.4 kg

DRUGS (13)
  1. IMURAN [Suspect]
     Indication: RHEUMATOID ARTHRITIS
     Dates: start: 201401, end: 2014
  2. HUMIRA [Suspect]
     Indication: RHEUMATOID ARTHRITIS
     Dates: start: 200306, end: 20140414
  3. ARICEPT (DONEPEZIL HYDROCHLORIDE) [Suspect]
     Indication: MEMORY IMPAIRMENT
     Dates: start: 201404, end: 2014
  4. METHOTREXATE (METHOTREXATE) [Suspect]
     Indication: RHEUMATOID ARTHRITIS
     Dates: end: 201311
  5. CYCLOBENZAPRINE (CYCLOBENZAPRINE) [Concomitant]
  6. OMEPRAZOLE (OMEPRAZOLE) [Concomitant]
  7. ZYRTEC (CETIRIZINE HYDROCHLORIDE) [Concomitant]
  8. CELECOXIB (CELECOXIB) [Concomitant]
  9. VITAMIN B12 (CYCANOCOBALAMIN) [Concomitant]
  10. MAGNESIUM (MAGNESIUM) [Concomitant]
  11. SINGULAIR (MONTELUKAST SODIUM) TABLET [Concomitant]
  12. CYMBALTA [Concomitant]
  13. OXYBUTYNIN CHLORIDE (OXYBUTYNIN HYDROCHLORIDE) [Concomitant]

REACTIONS (15)
  - Bradycardia [None]
  - Dizziness [None]
  - Fatigue [None]
  - Hypersomnia [None]
  - Urticaria [None]
  - Contusion [None]
  - Rash [None]
  - Vomiting [None]
  - Memory impairment [None]
  - Incision site pruritus [None]
  - Incisional drainage [None]
  - Incision site erythema [None]
  - Incision site infection [None]
  - Toxicity to various agents [None]
  - Cough [None]
